FAERS Safety Report 5003159-0 (Version None)
Quarter: 2006Q2

REPORT INFORMATION
  Report Type: 
  Country: None (occurrence: None)
  Receive Date: 20060512
  Receipt Date: 20060426
  Transmission Date: 20061013
  Serious: Yes (Hospitalization)
  Sender: FDA-Public Use
  Company Number: 2006057918

PATIENT
  Age: 53 Year
  Sex: Male
  Weight: 149.687 kg

DRUGS (1)
  1. CELEBREX [Suspect]
     Indication: PAIN IN EXTREMITY
     Dosage: 200 MG (200 MG, 1 IN 1 D)
     Dates: start: 20000405, end: 20001101

REACTIONS (5)
  - ABASIA [None]
  - BALANCE DISORDER [None]
  - PSYCHIATRIC SYMPTOM [None]
  - RESPIRATORY FAILURE [None]
  - THROMBOSIS [None]
